FAERS Safety Report 11547048 (Version 2)
Quarter: 2015Q3

REPORT INFORMATION
  Report Type: Report from Study
  Country: GB (occurrence: GB)
  Receive Date: 20150924
  Receipt Date: 20150929
  Transmission Date: 20151125
  Serious: Yes (Death)
  Sender: FDA-Public Use
  Company Number: GB-CELGENE-GBR-2015092917

PATIENT
  Age: 78 Year
  Sex: Female

DRUGS (1)
  1. POMALIDOMIDE [Suspect]
     Active Substance: POMALIDOMIDE
     Indication: PLASMA CELL MYELOMA
     Route: 048
     Dates: start: 20150401, end: 20150819

REACTIONS (1)
  - Colitis ischaemic [Fatal]

NARRATIVE: CASE EVENT DATE: 2015
